FAERS Safety Report 9705824 (Version 2)
Quarter: 2013Q4

REPORT INFORMATION
  Report Type: Spontaneous
  Country: US (occurrence: US)
  Receive Date: 20131122
  Receipt Date: 20131122
  Transmission Date: 20140711
  Serious: No
  Sender: FDA-Public Use
  Company Number: US-GILEAD-2008-0017991

PATIENT
  Age: 42 Year
  Sex: Male

DRUGS (5)
  1. LETAIRIS [Suspect]
     Indication: PULMONARY ARTERIAL HYPERTENSION
     Route: 048
     Dates: start: 20080606
  2. LEVAQUIN [Concomitant]
  3. MEDROL [Concomitant]
  4. ALBUTEROL [Concomitant]
  5. BENZONATATE [Concomitant]

REACTIONS (1)
  - Pneumonia [Unknown]
